FAERS Safety Report 5546027-8 (Version None)
Quarter: 2007Q4

REPORT INFORMATION
  Report Type: 
  Country: None (occurrence: None)
  Receive Date: 20071211
  Receipt Date: 20070917
  Transmission Date: 20080405
  Serious: No
  Sender: FDA-Public Use
  Company Number: US-BRISTOL-MYERS SQUIBB COMPANY-13851571

PATIENT
  Age: 58 Year
  Sex: Female
  Weight: 54 kg

DRUGS (5)
  1. EMSAM [Suspect]
     Dosage: CURRENT DOSE OF SELIGILINE TRANSDERMAL PATCH IS 9 MG.
     Route: 023
     Dates: start: 20060501
  2. LISINOPRIL [Concomitant]
  3. CLONAZEPAM [Concomitant]
  4. SEROQUEL [Concomitant]
  5. PREVACID [Concomitant]

REACTIONS (2)
  - APPLICATION SITE REACTION [None]
  - WEIGHT INCREASED [None]
